FAERS Safety Report 6132342-6 (Version None)
Quarter: 2009Q1

REPORT INFORMATION
  Report Type: 
  Country: None (occurrence: None)
  Receive Date: 20090324
  Receipt Date: 20090309
  Transmission Date: 20090719
  Serious: Yes (Death)
  Sender: FDA-Public Use
  Company Number: 2009000734

PATIENT
  Age: 80 Year
  Sex: Male

DRUGS (8)
  1. ERLOTINIB (ERLOTINIB) (TABLET) (ERLOTINIB) [Suspect]
     Indication: NON-SMALL CELL LUNG CANCER
     Dosage: 150 MG, QD, ORAL
     Route: 048
     Dates: start: 20080423
  2. SINTROM [Concomitant]
  3. TRANGOREX (AMIODARONE HYDROCHLORIDE) [Concomitant]
  4. SPIRIVA [Concomitant]
  5. NEBLIK (FORMOTEROL FUMARATE) [Concomitant]
  6. PULMICORT [Concomitant]
  7. EULEXIN [Concomitant]
  8. FLUMIL FORTE [Concomitant]

REACTIONS (1)
  - DEATH [None]
